FAERS Safety Report 7602998-7 (Version None)
Quarter: 2011Q2

REPORT INFORMATION
  Report Type: 
  Country: None (occurrence: None)
  Receive Date: 20110630
  Receipt Date: 20110622
  Transmission Date: 20111010
  Serious: Yes (Hospitalization)
  Sender: FDA-Public Use
  Company Number: 959335

PATIENT
  Age: 62 Year
  Sex: Male
  Weight: 75.3 kg

DRUGS (17)
  1. ADALAT CC [Concomitant]
  2. PRAVASTATIN [Concomitant]
  3. FOLIC ACID [Concomitant]
  4. (MEBEVERINE) [Concomitant]
  5. PREDNISOLONE [Concomitant]
  6. TRAMADOL HCL [Concomitant]
  7. WARFARIN SODIUM [Concomitant]
  8. OMEPRAZOLE [Concomitant]
  9. (ETANERCEPT) [Concomitant]
  10. GABAPENTIN [Concomitant]
  11. LEFLUNOMIDE [Suspect]
     Indication: RHEUMATOID ARTHRITIS
     Dosage: 20 MG MILLIGRAM(S),
     Dates: end: 20110527
  12. (BEZAFIBRATE) [Concomitant]
  13. LISINOPRIL [Concomitant]
  14. NITROGLYCERIN [Concomitant]
  15. METHOTREXATE [Suspect]
     Indication: RHEUMATOID ARTHRITIS
     Dosage: 10 MG MILLIGRAM(S)
     Dates: end: 20110527
  16. ATENOLOL [Concomitant]
  17. CALCIUM CARBONATE [Concomitant]

REACTIONS (4)
  - PANCYTOPENIA [None]
  - RECTAL HAEMORRHAGE [None]
  - ANAEMIA [None]
  - BONE MARROW TOXICITY [None]
